FAERS Safety Report 25636415 (Version 1)
Quarter: 2025Q3

REPORT INFORMATION
  Report Type: Report from Study
  Country: CA (occurrence: CA)
  Receive Date: 20250803
  Receipt Date: 20250803
  Transmission Date: 20251021
  Serious: Yes (Other)
  Sender: ABBVIE
  Company Number: CA-ABBVIE-6392922

PATIENT
  Age: 41 Year
  Sex: Female

DRUGS (2)
  1. SKYRIZI [Suspect]
     Active Substance: RISANKIZUMAB-RZAA
     Indication: Psoriasis
     Route: 058
  2. SKYRIZI [Suspect]
     Active Substance: RISANKIZUMAB-RZAA
     Route: 058

REACTIONS (7)
  - Haemoglobin decreased [Unknown]
  - Pruritus [Recovered/Resolved]
  - Haemorrhage [Unknown]
  - Endometriosis [Unknown]
  - Dizziness [Unknown]
  - Polycystic ovarian syndrome [Unknown]
  - Heavy menstrual bleeding [Recovered/Resolved]

NARRATIVE: CASE EVENT DATE: 20241201
